FAERS Safety Report 10003712 (Version 1)
Quarter: 2014Q1

REPORT INFORMATION
  Report Type: Spontaneous
  Country: JP (occurrence: JP)
  Receive Date: 20140312
  Receipt Date: 20140312
  Transmission Date: 20141002
  Serious: Yes (Death, Hospitalization, Other)
  Sender: FDA-Public Use
  Company Number: PHHY2014JP029622

PATIENT
  Age: 11 Year
  Sex: Female

DRUGS (10)
  1. CICLOSPORIN [Suspect]
     Indication: IMMUNOSUPPRESSION
  2. PREDNISOLONE [Suspect]
     Indication: LUNG INFILTRATION
     Dosage: 60 MG, PER DAY
  3. PREDNISOLONE [Suspect]
     Indication: PULMONARY HAEMOSIDEROSIS
     Dosage: 30 MG, PER DAY
  4. PREDNISOLONE [Suspect]
     Dosage: 15 MG, PER DAY
  5. METHYLPREDNISOLONE [Suspect]
     Indication: PULMONARY HAEMOSIDEROSIS
     Dosage: 125 MG, PER DAY
  6. BOSENTAN [Suspect]
     Indication: IMMUNOSUPPRESSION
  7. CYCLOPHOSPHAMIDE [Suspect]
     Dosage: 500 MG, UNK
  8. MIZORIBINE [Suspect]
  9. BERAPROST [Suspect]
     Indication: IMMUNOSUPPRESSION
  10. AZATHIOPRINE [Concomitant]
     Indication: PULMONARY HAEMOSIDEROSIS

REACTIONS (7)
  - Respiratory distress [Fatal]
  - Pulmonary oedema [Fatal]
  - Dyspnoea [Unknown]
  - Pulmonary alveolar haemorrhage [Unknown]
  - Pulmonary veno-occlusive disease [Unknown]
  - Therapeutic response decreased [Unknown]
  - Drug ineffective [Unknown]
